FAERS Safety Report 6774720-8 (Version None)
Quarter: 2010Q2

REPORT INFORMATION
  Report Type: 
  Country: None (occurrence: None)
  Receive Date: 20100617
  Receipt Date: 20100603
  Transmission Date: 20101027
  Serious: Yes (Death, Hospitalization, Other)
  Sender: FDA-Public Use
  Company Number: JP-ROCHE-704905

PATIENT
  Sex: Male
  Weight: 51 kg

DRUGS (16)
  1. AVASTIN [Suspect]
     Indication: LARGE INTESTINE CARCINOMA
     Route: 041
     Dates: start: 20100311, end: 20100416
  2. AVASTIN [Suspect]
     Route: 041
     Dates: end: 20100427
  3. ELPLAT [Suspect]
     Indication: LARGE INTESTINE CARCINOMA
     Dosage: NOTE:DOSAGE IS UNCERTAIN
     Route: 041
     Dates: start: 20100224, end: 20100416
  4. FLUOROURACIL [Suspect]
     Indication: DRUG USE FOR UNKNOWN INDICATION
     Route: 041
     Dates: start: 20100224, end: 20100401
  5. FLUOROURACIL [Suspect]
     Dosage: NOTE:DOSAGE IS UNCERTAIN
     Route: 040
     Dates: start: 20100224, end: 20100416
  6. LEUCOVORIN CALCIUM [Concomitant]
     Dosage: NOTE: DOSAGE IS UNCERTAIN, DRUG:LEVOFOLINATE CALCIUM
     Route: 041
     Dates: start: 20100224, end: 20100416
  7. GRANISETRON [Concomitant]
     Dates: start: 20100224, end: 20100416
  8. DECADRON [Concomitant]
     Dosage: FORM: UNCERTAINITY
     Dates: start: 20100224, end: 20100416
  9. APIDRA [Concomitant]
     Route: 058
  10. MAGMITT [Concomitant]
  11. ALLEGRA [Concomitant]
     Route: 048
  12. LIPITOR [Concomitant]
     Route: 048
  13. ARTIST [Concomitant]
     Route: 048
  14. MUCOSTA [Concomitant]
     Dosage: FORM: PERORAL AGENT
     Route: 048
  15. ATARAX [Concomitant]
     Route: 048
  16. GOSHAJINKIGAN [Concomitant]
     Dosage: FORM: GRANULATED POWDER
     Route: 048

REACTIONS (16)
  - DISSEMINATED INTRAVASCULAR COAGULATION [None]
  - DYSLALIA [None]
  - EPISTAXIS [None]
  - FACE OEDEMA [None]
  - HYPOAESTHESIA [None]
  - LARYNGEAL OEDEMA [None]
  - MULTI-ORGAN FAILURE [None]
  - NEUTROPHIL COUNT DECREASED [None]
  - OEDEMA PERIPHERAL [None]
  - PALATAL DISORDER [None]
  - PHARYNGITIS [None]
  - PHOTOSENSITIVITY REACTION [None]
  - PLATELET COUNT DECREASED [None]
  - RENAL FAILURE ACUTE [None]
  - STAPHYLOCOCCAL INFECTION [None]
  - THROAT IRRITATION [None]
